FAERS Safety Report 23864767 (Version 1)
Quarter: 2024Q2

REPORT INFORMATION
  Report Type: Spontaneous
  Country: US (occurrence: US)
  Receive Date: 20240516
  Receipt Date: 20240516
  Transmission Date: 20240715
  Serious: Yes (Hospitalization, Other)
  Sender: FDA-Public Use
  Company Number: US-PARATEK PHARMACEUTICALS, INC.-2024PTK00379

PATIENT
  Age: 6 Decade
  Sex: Male

DRUGS (4)
  1. NUZYRA [Suspect]
     Active Substance: OMADACYCLINE
     Indication: Diabetic foot infection
     Dosage: 300 MG, 1X/DAY
     Route: 048
  2. NUZYRA [Suspect]
     Active Substance: OMADACYCLINE
     Indication: Diabetic foot
  3. UNSPECIFIED DIABETES MEDICATION [Concomitant]
  4. UNSPECIFIED CARDIAC MEDICATION [Concomitant]

REACTIONS (2)
  - Thrombocytopenia [Not Recovered/Not Resolved]
  - Diabetic foot infection [Not Recovered/Not Resolved]
